FAERS Safety Report 8773811 (Version 9)
Quarter: 2013Q3

REPORT INFORMATION
  Report Type: Spontaneous
  Country: CA (occurrence: CA)
  Receive Date: 20120907
  Receipt Date: 20130723
  Transmission Date: 20140515
  Serious: Yes (Hospitalization, Other)
  Sender: FDA-Public Use
  Company Number: CA-ROCHE-1116911

PATIENT
  Age: 36 Year
  Sex: Female

DRUGS (10)
  1. XOLAIR [Suspect]
     Indication: ASTHMA
     Route: 058
     Dates: start: 20120703
  2. SINGULAIR [Concomitant]
  3. ALVESCO [Concomitant]
  4. OXEZE [Concomitant]
  5. VENTOLIN [Concomitant]
  6. PULMICORT [Concomitant]
  7. PREDNISONE [Concomitant]
  8. SPIRIVA [Concomitant]
  9. SINUS RINSE (UNK INGREDIENTS) [Concomitant]
  10. OXYGEN [Concomitant]

REACTIONS (10)
  - Asthma [Unknown]
  - Hypersensitivity [Recovered/Resolved]
  - Dyspnoea [Unknown]
  - Anaphylactic reaction [Unknown]
  - Dysphagia [Unknown]
  - Ear pain [Unknown]
  - Bronchospasm [Unknown]
  - Cystic fibrosis [Unknown]
  - Presyncope [Recovered/Resolved]
  - Facial pain [Recovered/Resolved]
